FAERS Safety Report 7473391-5 (Version None)
Quarter: 2011Q2

REPORT INFORMATION
  Report Type: 
  Country: None (occurrence: None)
  Receive Date: 20110511
  Receipt Date: 20110421
  Transmission Date: 20111010
  Serious: Yes (Hospitalization)
  Sender: FDA-Public Use
  Company Number: FR-ROCHE-776070

PATIENT
  Sex: Female
  Weight: 111 kg

DRUGS (6)
  1. LENOGRASTIM [Suspect]
     Dosage: DOSE REPORTED AS 34 INTERNATIONAL UNIT EVERY CYCLE
     Route: 065
     Dates: start: 20110329
  2. LENOGRASTIM [Suspect]
     Indication: PROPHYLAXIS
     Dosage: DOSE REPORTED AS 34 INTERNATIONAL UNIT EVERY CYCLE
     Route: 065
     Dates: start: 20101203
  3. DOCETAXEL [Suspect]
     Route: 042
     Dates: start: 20110322
  4. CAPECITABINE [Suspect]
     Route: 048
     Dates: start: 20110404
  5. DOCETAXEL [Suspect]
     Route: 042
     Dates: start: 20101202
  6. CAPECITABINE [Suspect]
     Route: 048
     Dates: start: 20101202

REACTIONS (1)
  - SUPERIOR VENA CAVA SYNDROME [None]
